FAERS Safety Report 14218377 (Version 1)
Quarter: 2017Q4

REPORT INFORMATION
  Report Type: Spontaneous
  Country: US (occurrence: US)
  Receive Date: 20171123
  Receipt Date: 20171123
  Transmission Date: 20180321
  Serious: No
  Sender: FDA-Public Use
  Company Number: US-GLAXOSMITHKLINE-US2017GSK178294

PATIENT
  Sex: Female

DRUGS (8)
  1. SKELAXIN [Suspect]
     Active Substance: METAXALONE
     Indication: NEUROMUSCULAR PAIN
  2. OXYCODONE [Suspect]
     Active Substance: OXYCODONE
     Indication: PRODUCT USED FOR UNKNOWN INDICATION
  3. GABAPENTIN. [Suspect]
     Active Substance: GABAPENTIN
     Indication: PRODUCT USED FOR UNKNOWN INDICATION
  4. BACLOFEN. [Suspect]
     Active Substance: BACLOFEN
     Indication: PRODUCT USED FOR UNKNOWN INDICATION
  5. SKELAXIN [Suspect]
     Active Substance: METAXALONE
     Indication: COMPLEX REGIONAL PAIN SYNDROME
  6. SKELAXIN [Suspect]
     Active Substance: METAXALONE
     Indication: STENOSIS
  7. LAMOTRIGINE. [Suspect]
     Active Substance: LAMOTRIGINE
     Indication: PRODUCT USED FOR UNKNOWN INDICATION
  8. SKELAXIN [Suspect]
     Active Substance: METAXALONE
     Indication: FIBROMYALGIA

REACTIONS (10)
  - Concussion [Unknown]
  - Lower limb fracture [Unknown]
  - Foot fracture [Unknown]
  - Ankle fracture [Unknown]
  - Stenosis [Unknown]
  - Neuromuscular pain [Unknown]
  - Complex regional pain syndrome [Unknown]
  - Fibromyalgia [Unknown]
  - Fall [Unknown]
  - Herpes zoster [Unknown]
